FAERS Safety Report 9693545 (Version 1)
Quarter: 2013Q4

REPORT INFORMATION
  Report Type: Spontaneous
  Country: JP (occurrence: JP)
  Receive Date: 20131118
  Receipt Date: 20131118
  Transmission Date: 20140711
  Serious: Yes (Hospitalization)
  Sender: FDA-Public Use
  Company Number: JP-GLAXOSMITHKLINE-B0914697A

PATIENT
  Age: 81 Year
  Sex: Female
  Weight: 36 kg

DRUGS (9)
  1. VALTREX [Suspect]
     Indication: HERPES ZOSTER
     Dosage: 1000MG THREE TIMES PER DAY
     Route: 048
     Dates: start: 20130704, end: 20130708
  2. VALTREX [Suspect]
     Indication: HERPES ZOSTER
     Dosage: 1000MG TWICE PER DAY
     Route: 048
     Dates: start: 20130709, end: 20130709
  3. RHEUMATREX [Concomitant]
     Dosage: 2MG TWICE PER DAY
     Route: 048
     Dates: end: 20130709
  4. FOLIAMIN [Concomitant]
     Dosage: 5MG PER DAY
     Route: 048
     Dates: end: 20130709
  5. CELECOX [Concomitant]
     Dosage: 100MG TWICE PER DAY
     Route: 048
     Dates: end: 20130709
  6. REBAMIPIDE [Concomitant]
     Dosage: 100MG TWICE PER DAY
     Route: 048
     Dates: end: 20130709
  7. MECOBALAMIN [Concomitant]
     Dosage: 500MCG THREE TIMES PER DAY
     Route: 048
     Dates: end: 20130709
  8. KALLIKREIN [Concomitant]
     Dosage: 10IU THREE TIMES PER DAY
     Route: 048
     Dates: end: 20130709
  9. BONOTEO [Concomitant]
     Dosage: 1MG PER DAY
     Route: 048
     Dates: end: 20130709

REACTIONS (1)
  - Renal disorder [Recovered/Resolved]
